FAERS Safety Report 8028475-X (Version None)
Quarter: 2012Q1

REPORT INFORMATION
  Report Type: 
  Country: None (occurrence: None)
  Receive Date: 20120106
  Receipt Date: 20120104
  Transmission Date: 20120608
  Serious: Yes (Hospitalization, Disabling, Other)
  Sender: FDA-Public Use
  Company Number: US-ABBOTT-11P-163-0887135-00

PATIENT
  Sex: Female
  Weight: 77.18 kg

DRUGS (6)
  1. TRAZODONE HCL [Concomitant]
     Indication: INSOMNIA
     Dosage: AT BEDTIME
  2. SYMBICORT [Concomitant]
     Indication: RESPIRATORY DISORDER
  3. DICYCLOMINE [Concomitant]
     Indication: IRRITABLE BOWEL SYNDROME
  4. ASPIRIN [Concomitant]
     Indication: PRODUCT USED FOR UNKNOWN INDICATION
  5. HUMIRA [Suspect]
     Indication: PSORIASIS
     Route: 058
     Dates: start: 20100201, end: 20110201
  6. NAPROXEN [Concomitant]
     Indication: FIBROMYALGIA

REACTIONS (19)
  - WHEEZING [None]
  - PAIN [None]
  - PNEUMOTHORAX [None]
  - RESPIRATORY DISORDER [None]
  - PSORIASIS [None]
  - HYPOTHYROIDISM [None]
  - COMA [None]
  - PYREXIA [None]
  - BLOOD CHOLESTEROL INCREASED [None]
  - PNEUMONIA [None]
  - ABASIA [None]
  - MEMORY IMPAIRMENT [None]
  - AMNESIA [None]
  - PNEUMONIA LEGIONELLA [None]
  - GASTROOESOPHAGEAL REFLUX DISEASE [None]
  - DEPRESSION [None]
  - APHASIA [None]
  - FIBROMYALGIA [None]
  - ACTIVITIES OF DAILY LIVING IMPAIRED [None]
